FAERS Safety Report 8585606-0 (Version None)
Quarter: 2012Q3

REPORT INFORMATION
  Report Type: 
  Country: None (occurrence: None)
  Receive Date: 20120810
  Receipt Date: 20120803
  Transmission Date: 20120928
  Serious: Yes (Other)
  Sender: FDA-Public Use
  Company Number: US-JNJFOC-20120801964

PATIENT
  Sex: Female
  Weight: 64.41 kg

DRUGS (3)
  1. NUCYNTA ER [Suspect]
     Indication: ARTHRALGIA
     Dosage: TWICE DAILY
     Route: 048
     Dates: end: 20120702
  2. NUCYNTA ER [Suspect]
     Dosage: TWICE DAILY
     Route: 048
     Dates: start: 20120703
  3. MILK OF MAGNESIA TAB [Concomitant]
     Indication: CONSTIPATION
     Route: 048

REACTIONS (8)
  - ANXIETY [None]
  - EATING DISORDER [None]
  - DECREASED APPETITE [None]
  - URINARY TRACT INFECTION [None]
  - HYPERHIDROSIS [None]
  - INSOMNIA [None]
  - ABNORMAL LOSS OF WEIGHT [None]
  - OEDEMA PERIPHERAL [None]
